FAERS Safety Report 14581704 (Version 1)
Quarter: 2018Q1

REPORT INFORMATION
  Report Type: Spontaneous
  Country: FR (occurrence: FR)
  Receive Date: 20180228
  Receipt Date: 20180228
  Transmission Date: 20180509
  Serious: Yes (Life-Threatening)
  Sender: FDA-Public Use
  Company Number: FR-CIPLA LTD.-2018FR06433

PATIENT

DRUGS (5)
  1. FORMOTEROL [Suspect]
     Active Substance: FORMOTEROL
     Indication: CHRONIC OBSTRUCTIVE PULMONARY DISEASE
     Dosage: 36 ?G, DAILY
     Route: 055
  2. VENTOLINE                          /00139502/ [Suspect]
     Active Substance: ALBUTEROL SULFATE
     Indication: CHRONIC OBSTRUCTIVE PULMONARY DISEASE
     Dosage: UNK
     Route: 055
  3. TARKA [Suspect]
     Active Substance: TRANDOLAPRIL\VERAPAMIL HYDROCHLORIDE
     Indication: HYPERTENSION
     Dosage: 180/2MG
     Route: 065
  4. STELARA [Suspect]
     Active Substance: USTEKINUMAB
     Indication: PSORIATIC ARTHROPATHY
     Dosage: 90 MG, THRICE MONTHLY
     Route: 058
     Dates: start: 201602
  5. BUDESONIDE. [Suspect]
     Active Substance: BUDESONIDE
     Indication: CHRONIC OBSTRUCTIVE PULMONARY DISEASE
     Dosage: 1200 MG, DAILY
     Route: 055

REACTIONS (1)
  - Adrenal cortex necrosis [Recovering/Resolving]

NARRATIVE: CASE EVENT DATE: 20171206
